FAERS Safety Report 24350656 (Version 2)
Quarter: 2024Q3

REPORT INFORMATION
  Report Type: Spontaneous
  Country: US (occurrence: US)
  Receive Date: 20240923
  Receipt Date: 20240930
  Transmission Date: 20241016
  Serious: No
  Sender: PFIZER
  Company Number: US-PFIZER INC-202400259097

PATIENT
  Age: 11 Year
  Sex: Female

DRUGS (1)
  1. GENOTROPIN [Suspect]
     Active Substance: SOMATROPIN
     Indication: Hormone replacement therapy
     Dosage: EVERY NIGHT

REACTIONS (4)
  - Drug dose omission by device [Unknown]
  - Device information output issue [Unknown]
  - Device use issue [Unknown]
  - Wrong technique in device usage process [Unknown]
